FAERS Safety Report 6527237-X (Version None)
Quarter: 2009Q4

REPORT INFORMATION
  Report Type: 
  Country: None (occurrence: None)
  Receive Date: 20091230
  Receipt Date: 20091215
  Transmission Date: 20100525
  Serious: Yes (Death, Life-Threatening)
  Sender: FDA-Public Use
  Company Number: 20090550

PATIENT
  Age: 75 Year
  Sex: Female

DRUGS (6)
  1. VENOFER [Suspect]
     Dates: start: 20020830, end: 20020830
  2. ATARAX [Suspect]
     Indication: INSOMNIA
     Dosage: 10 MG DAILY
  3. METOPROLOL [Suspect]
     Indication: HYPERTENSION
     Dosage: 50 MG DAILY ORAL
     Route: 048
  4. OMEPRAZOLE [Concomitant]
  5. BUMETANIDE [Concomitant]
  6. CALCIUM CARBONATE [Concomitant]

REACTIONS (4)
  - AORTIC ANEURYSM [None]
  - CIRCULATORY COLLAPSE [None]
  - COLITIS ISCHAEMIC [None]
  - MESENTERIC ARTERY THROMBOSIS [None]
